FAERS Safety Report 9855285 (Version 4)
Quarter: 2014Q4

REPORT INFORMATION
  Report Type: Report from Study
  Country: JP (occurrence: JP)
  Receive Date: 20140130
  Receipt Date: 20141223
  Transmission Date: 20150529
  Serious: Yes (Death, Life-Threatening)
  Sender: FDA-Public Use
  Company Number: JP-MPIJNJ-2014JNJ000182

PATIENT

DRUGS (6)
  1. VELCADE [Suspect]
     Active Substance: BORTEZOMIB
     Indication: PLASMA CELL MYELOMA
     Dosage: 1.3 MG/M2, QD
     Route: 058
     Dates: start: 20131213, end: 20131216
  2. EPADEL                             /01682401/ [Concomitant]
     Active Substance: ETHYL ICOSAPENTATE\ICOSAPENT
     Indication: ACUTE KIDNEY INJURY
     Dosage: 1800 MG, QD
     Route: 048
     Dates: start: 20131206, end: 20131219
  3. CYCLOPHOSPHAMIDE. [Concomitant]
     Active Substance: CYCLOPHOSPHAMIDE
     Indication: PLASMA CELL MYELOMA
     Dosage: UNK
     Dates: start: 20131213, end: 20131216
  4. DEXAMETHASONE. [Concomitant]
     Active Substance: DEXAMETHASONE
     Indication: PLASMA CELL MYELOMA
     Dosage: UNK
     Dates: start: 20131213, end: 20131216
  5. JUSO [Concomitant]
     Indication: ACUTE KIDNEY INJURY
     Dosage: 1500 MG, QD
     Route: 048
     Dates: start: 20131203, end: 20131219
  6. FEBURIC [Concomitant]
     Active Substance: FEBUXOSTAT
     Indication: ACUTE KIDNEY INJURY
     Dosage: 20 MG, QD
     Route: 048
     Dates: start: 20131203, end: 20131219

REACTIONS (3)
  - Injection site erythema [Unknown]
  - Hyperkalaemia [Fatal]
  - Drug eruption [Unknown]

NARRATIVE: CASE EVENT DATE: 20131214
